FAERS Safety Report 4675339-5 (Version None)
Quarter: 2005Q2

REPORT INFORMATION
  Report Type: 
  Country: None (occurrence: None)
  Receive Date: 20050527
  Receipt Date: 20041202
  Transmission Date: 20051028
  Serious: Yes (Hospitalization)
  Sender: FDA-Public Use
  Company Number: US-BRISTOL-MYERS SQUIBB COMPANY-12783858

PATIENT
  Age: 48 Year
  Sex: Female

DRUGS (2)
  1. ABILIFY [Suspect]
     Indication: MAJOR DEPRESSION
     Dosage: RESUMED AT 5 MG/DAY
     Route: 048
     Dates: start: 20031101
  2. ANTIDEPRESSANT [Concomitant]

REACTIONS (2)
  - INSOMNIA [None]
  - MANIA [None]
